FAERS Safety Report 9596748 (Version 2)
Quarter: 2013Q4

REPORT INFORMATION
  Report Type: Report from Study
  Country: US (occurrence: US)
  Receive Date: 20131004
  Receipt Date: 20131004
  Transmission Date: 20140711
  Serious: Yes (Hospitalization)
  Sender: FDA-Public Use
  Company Number: US-ABBVIE-13P-163-1131283-00

PATIENT
  Age: 63 Year
  Sex: Female
  Weight: 99 kg

DRUGS (2)
  1. HUMIRA [Suspect]
     Indication: RHEUMATOID ARTHRITIS
     Dates: start: 201208, end: 201304
  2. HUMIRA [Suspect]
     Dates: start: 201107, end: 201211

REACTIONS (5)
  - Renal failure acute [Recovered/Resolved]
  - Fluid retention [Recovered/Resolved]
  - Breast swelling [Recovered/Resolved]
  - Fungal skin infection [Recovered/Resolved]
  - Fungal skin infection [Recovered/Resolved]
